FAERS Safety Report 15641795 (Version 1)
Quarter: 2018Q4

REPORT INFORMATION
  Report Type: Report from Study
  Country: None (occurrence: FR)
  Receive Date: 20181121
  Receipt Date: 20181121
  Transmission Date: 20190205
  Serious: Yes (Other)
  Sender: FDA-Public Use
  Company Number: FR-ABBVIE-18K-056-2554506-00

PATIENT
  Age: 46 Year
  Sex: Female

DRUGS (1)
  1. HUMIRA [Suspect]
     Active Substance: ADALIMUMAB
     Indication: AXIAL SPONDYLOARTHRITIS
     Dosage: 1 X 40 MG AT W0; THEN 1 X 40 MG AT W2
     Route: 058
     Dates: start: 20181002

REACTIONS (25)
  - Nausea [Unknown]
  - Pyrexia [Recovered/Resolved]
  - Mobility decreased [Unknown]
  - Chondropathy [Unknown]
  - Renal pain [Unknown]
  - Back pain [Unknown]
  - Headache [Unknown]
  - Paraesthesia [Unknown]
  - Peripheral swelling [Unknown]
  - Palpitations [Unknown]
  - Pain [Unknown]
  - Angina pectoris [Unknown]
  - Muscle rupture [Unknown]
  - Pyrexia [Recovered/Resolved]
  - Chromaturia [Unknown]
  - Musculoskeletal pain [Unknown]
  - Rhinorrhoea [Unknown]
  - Muscle spasms [Unknown]
  - Fatigue [Unknown]
  - Tonsillitis [Not Recovered/Not Resolved]
  - Urine odour abnormal [Unknown]
  - Burning sensation [Unknown]
  - Hypoaesthesia [Unknown]
  - Nasal congestion [Unknown]
  - Lymphadenopathy [Not Recovered/Not Resolved]

NARRATIVE: CASE EVENT DATE: 20181002
